FAERS Safety Report 17247282 (Version 1)
Quarter: 2019Q4

REPORT INFORMATION
  Report Type: Spontaneous
  Country: US (occurrence: US)
  Receive Date: 20191213
  Receipt Date: 20191213
  Transmission Date: 20200122
  Serious: No
  Sender: FDA-Public Use
  Company Number: None

PATIENT
  Age: 75 Year
  Sex: Female

DRUGS (1)
  1. XELJANZ [Suspect]
     Active Substance: TOFACITINIB CITRATE
     Indication: PSORIATIC ARTHROPATHY
     Route: 048
     Dates: start: 20190925

REACTIONS (7)
  - Dizziness [None]
  - Headache [None]
  - Urticaria [None]
  - Pollakiuria [None]
  - Balance disorder [None]
  - Depressed level of consciousness [None]
  - Muscle spasms [None]

NARRATIVE: CASE EVENT DATE: 20191002
